FAERS Safety Report 16524834 (Version 2)
Quarter: 2019Q4

REPORT INFORMATION
  Report Type: Spontaneous
  Country: US (occurrence: US)
  Receive Date: 20190703
  Receipt Date: 20191001
  Transmission Date: 20200122
  Serious: No
  Sender: FDA-Public Use
  Company Number: US-MYLANLABS-2019M1058220

PATIENT
  Age: 66 Year
  Sex: Female
  Weight: 57 kg

DRUGS (1)
  1. TRETINOIN GEL, USP 0.05% [Suspect]
     Active Substance: TRETINOIN
     Indication: ACNE
     Dosage: UNK
     Route: 061
     Dates: start: 20190611

REACTIONS (3)
  - Condition aggravated [Not Recovered/Not Resolved]
  - Product physical consistency issue [None]
  - Rash [Not Recovered/Not Resolved]

NARRATIVE: CASE EVENT DATE: 20190618
